FAERS Safety Report 15313826 (Version 1)
Quarter: 2018Q3

REPORT INFORMATION
  Report Type: Spontaneous
  Country: US (occurrence: US)
  Receive Date: 20180824
  Receipt Date: 20180824
  Transmission Date: 20181010
  Serious: Yes (Other)
  Sender: FDA-Public Use
  Company Number: US-TEVA-2018-US-946536

PATIENT
  Sex: Female

DRUGS (1)
  1. COPAXONE [Suspect]
     Active Substance: GLATIRAMER ACETATE
     Route: 065

REACTIONS (9)
  - Hypoaesthesia [Unknown]
  - Multiple sclerosis relapse [Unknown]
  - Ill-defined disorder [Unknown]
  - Fatigue [Unknown]
  - Visual impairment [Recovered/Resolved]
  - Fine motor skill dysfunction [Unknown]
  - Optic neuritis [Unknown]
  - Paraesthesia [Unknown]
  - Lhermitte^s sign [Unknown]
